FAERS Safety Report 9279104 (Version 1)
Quarter: 2012Q4

REPORT INFORMATION
  Report Type: Spontaneous
  Country: FR (occurrence: None)
  Receive Date: 20120925
  Receipt Date: 20120925
  Transmission Date: 20130627
  Serious: Yes (Hospitalization)
  Sender: FDA-Public Use
  Company Number: 7142877

PATIENT
  Age: 54 Year
  Sex: Female

DRUGS (2)
  1. LEVOTHYROX [Suspect]
     Indication: BASEDOW^S DISEASE
     Dates: start: 2006
  2. ZOLOFT [Suspect]
     Indication: DRUG USE FOR UNKNOWN INDICATION
     Route: 048
     Dates: end: 20120629

REACTIONS (4)
  - Hypothyroidism [None]
  - Drug interaction [None]
  - Anti-thyroid antibody positive [None]
  - Anti-thyroid antibody positive [None]
